FAERS Safety Report 8746252 (Version 4)
Quarter: 2012Q4

REPORT INFORMATION
  Report Type: Report from Study
  Country: US (occurrence: US)
  Receive Date: 20120827
  Receipt Date: 20120911
  Transmission Date: 20130627
  Serious: Yes (Hospitalization)
  Sender: FDA-Public Use
  Company Number: US-JNJFOC-20120811620

PATIENT
  Age: 15 Year
  Sex: Male

DRUGS (21)
  1. REMICADE [Suspect]
     Indication: INFLAMMATORY BOWEL DISEASE
     Route: 042
     Dates: start: 20070324, end: 200710
  2. ANTIBIOTICS [Concomitant]
  3. OTHER THERAPEUTIC PRODUCTS [Concomitant]
  4. WELCHOL [Concomitant]
  5. PECTIN [Concomitant]
  6. PROPANOL [Concomitant]
  7. OMEPRAZOLE [Concomitant]
  8. ZOFRAN [Concomitant]
  9. PRO AIR [Concomitant]
  10. IMODIUM [Concomitant]
  11. PROBIOTICS [Concomitant]
  12. LEXAPRO [Concomitant]
  13. CALMOSEPTINE [Concomitant]
  14. PIMECROLIMUS [Concomitant]
  15. ^VITAMINS^ (NOS) [Concomitant]
  16. LOPRESSOR [Concomitant]
  17. TACROLIMUS [Concomitant]
  18. BENTYL [Concomitant]
  19. CLARITIN [Concomitant]
  20. ROXICET [Concomitant]
  21. COMBIVENT [Concomitant]

REACTIONS (1)
  - Diarrhoea [Recovered/Resolved]
